FAERS Safety Report 4454795-1 (Version None)
Quarter: 2004Q3

REPORT INFORMATION
  Report Type: 
  Country: None (occurrence: None)
  Receive Date: 20040824
  Receipt Date: 20040722
  Transmission Date: 20050211
  Serious: No
  Sender: FDA-Public Use
  Company Number: SU-2004-002536

PATIENT
  Age: 58 Year
  Sex: Female
  Weight: 52.1637 kg

DRUGS (7)
  1. BENICAR [Suspect]
     Indication: HYPERTENSION
     Dosage: 10 MG QD PO
     Route: 048
     Dates: start: 20030801
  2. KETEC [Concomitant]
  3. ACTONEL [Concomitant]
  4. CALCIUM [Concomitant]
  5. SEREVENT [Concomitant]
  6. FLOVENT [Concomitant]
  7. MAXAIR [Concomitant]

REACTIONS (1)
  - COUGH [None]
